FAERS Safety Report 8275803-6 (Version None)
Quarter: 2012Q2

REPORT INFORMATION
  Report Type: 
  Country: None (occurrence: None)
  Receive Date: 20120410
  Receipt Date: 20120410
  Transmission Date: 20120825
  Serious: Yes (Hospitalization)
  Sender: FDA-Public Use
  Company Number: None

PATIENT
  Age: 25 Year
  Sex: Male

DRUGS (2)
  1. PIPERACILLIN AND TAZOBACTAM [Suspect]
     Indication: INFECTION
     Dosage: 4.5 GM QID IV
     Route: 042
     Dates: start: 20111213, end: 20111214
  2. VANCOMYCIN [Suspect]
     Dosage: 1GM TID IV
     Route: 042
     Dates: start: 20111205, end: 20111219

REACTIONS (5)
  - RASH GENERALISED [None]
  - BODY TEMPERATURE INCREASED [None]
  - RASH PAPULAR [None]
  - RASH ERYTHEMATOUS [None]
  - EOSINOPHILIA [None]
